FAERS Safety Report 10032355 (Version 3)
Quarter: 2014Q2

REPORT INFORMATION
  Report Type: Spontaneous
  Country: JP (occurrence: JP)
  Receive Date: 20140324
  Receipt Date: 20140411
  Transmission Date: 20141212
  Serious: Yes (Hospitalization)
  Sender: FDA-Public Use
  Company Number: JP-KOWA-2014S1000244

PATIENT
  Age: 81 Year
  Sex: Female
  Weight: 48 kg

DRUGS (11)
  1. LIVALO [Suspect]
     Indication: HYPERCHOLESTEROLAEMIA
     Route: 048
     Dates: start: 20100301, end: 20140106
  2. BAYASPIRIN [Concomitant]
     Indication: MYOCARDIAL INFARCTION
     Route: 048
     Dates: start: 20100201
  3. BAYASPIRIN [Concomitant]
     Indication: MITRAL VALVE INCOMPETENCE
     Route: 048
     Dates: start: 20100201
  4. BAYASPIRIN [Concomitant]
     Indication: CEREBRAL INFARCTION
     Route: 048
     Dates: start: 20100201
  5. ARTIST [Concomitant]
     Indication: CARDIAC FAILURE
     Route: 048
     Dates: start: 20100201
  6. PARIET [Concomitant]
     Indication: DUODENAL ULCER
     Route: 048
     Dates: start: 20100201
  7. ZYLORIC [Concomitant]
     Indication: HYPERURICAEMIA
     Route: 048
     Dates: start: 20060622
  8. FUROSEMIDE [Concomitant]
     Indication: CARDIAC FAILURE
     Route: 048
  9. NICORANDIL [Concomitant]
     Indication: CARDIAC FAILURE
     Route: 048
     Dates: start: 20100201
  10. WARFARIN [Concomitant]
     Indication: ATRIAL FIBRILLATION
     Route: 048
  11. ARGAMATE [Concomitant]
     Route: 048
     Dates: start: 20111222, end: 20140107

REACTIONS (2)
  - Rhabdomyolysis [Recovered/Resolved]
  - Pneumonia [Unknown]
